FAERS Safety Report 5564369-7 (Version None)
Quarter: 2007Q4

REPORT INFORMATION
  Report Type: 
  Country: None (occurrence: None)
  Receive Date: 20071218
  Receipt Date: 20071211
  Transmission Date: 20080405
  Serious: Yes (Life-Threatening)
  Sender: FDA-Public Use
  Company Number: JP-BRISTOL-MYERS SQUIBB COMPANY-13939632

PATIENT
  Age: 52 Year
  Sex: Female

DRUGS (9)
  1. TAXOL [Suspect]
     Indication: GASTRIC CANCER
     Dosage: 80MG WITH 500ML OF GLUCOSE INFUSION WAS STARTED.ALSO RECEIVED PACLITAXEL ON 06-SEP-2007.37 TOTAL INF
     Route: 041
     Dates: start: 20070928, end: 20070928
  2. OXYCONTIN [Concomitant]
     Dosage: ALSO TAKEN ORALLY 10MG,3 IN 1 DAY FROM 26SEP2007 TO 18OCT2007.
     Route: 048
     Dates: start: 20050614, end: 20070925
  3. NORVASC [Concomitant]
     Route: 048
  4. DUROTEP [Concomitant]
     Route: 062
     Dates: start: 20070926
  5. OPSO [Concomitant]
     Route: 048
  6. ZANTAC [Concomitant]
     Route: 041
     Dates: start: 20070906
  7. DECADRON [Concomitant]
     Route: 041
     Dates: start: 20070906
  8. RESTAMIN [Concomitant]
     Route: 048
     Dates: start: 20070906
  9. TS-1 [Concomitant]
     Route: 048
     Dates: start: 20070823

REACTIONS (1)
  - ANAPHYLACTOID SHOCK [None]
